FAERS Safety Report 8915507 (Version 1)
Quarter: 2012Q4

REPORT INFORMATION
  Report Type: 
  Country: CN (occurrence: CN)
  Receive Date: 20121119
  Receipt Date: 20121119
  Transmission Date: 20130627
  Serious: Yes (Hospitalization)
  Sender: FDA-Public Use
  Company Number: CN-PFIZER INC-2012284490

PATIENT
  Age: 65 Year
  Sex: Male

DRUGS (2)
  1. MEDROL [Suspect]
     Indication: ANGIITIS
     Dosage: 8 tablet, 1x/day
     Route: 048
     Dates: start: 20121012
  2. LIPITOR [Concomitant]
     Route: 048

REACTIONS (4)
  - Off label use [Unknown]
  - Muscular weakness [Unknown]
  - Muscle atrophy [Unknown]
  - Nasopharyngitis [Unknown]
